FAERS Safety Report 6905329-0 (Version None)
Quarter: 2010Q3

REPORT INFORMATION
  Report Type: 
  Country: None (occurrence: None)
  Receive Date: 20100730
  Receipt Date: 20100717
  Transmission Date: 20110219
  Serious: Yes (Other)
  Sender: FDA-Public Use
  Company Number: 2010AP001467

PATIENT
  Age: 65 Year
  Sex: Female

DRUGS (7)
  1. ALENDRONATE SODIUM [Suspect]
  2. SIMVASTATIN [Concomitant]
  3. LISINOPRIL [Concomitant]
  4. OMEPRAZOLE [Concomitant]
  5. PREDNISONE [Concomitant]
  6. ALBUTEROL [Concomitant]
  7. IPRATROPIUM BROMIDE [Concomitant]

REACTIONS (13)
  - BACK PAIN [None]
  - BLOOD GLUCOSE INCREASED [None]
  - BONE DISORDER [None]
  - BONE LESION [None]
  - FEMUR FRACTURE [None]
  - GAIT DISTURBANCE [None]
  - HIP FRACTURE [None]
  - MALABSORPTION [None]
  - METASTASES TO BONE [None]
  - OSTEOPOROSIS [None]
  - PELVIC PAIN [None]
  - PROCEDURAL COMPLICATION [None]
  - STRESS FRACTURE [None]
